FAERS Safety Report 21993347 (Version 1)
Quarter: 2023Q1

REPORT INFORMATION
  Report Type: Spontaneous
  Country: US (occurrence: US)
  Receive Date: 20230215
  Receipt Date: 20230215
  Transmission Date: 20230418
  Serious: Yes (Other)
  Sender: FDA-Public Use
  Company Number: US-009507513-2302USA002998

PATIENT
  Age: 78 Year
  Sex: Male

DRUGS (6)
  1. KEYTRUDA [Suspect]
     Active Substance: PEMBROLIZUMAB
     Indication: Bladder cancer
     Dosage: 200 MILLIGRAM, EVERY 21 DAYS
     Dates: start: 202206
  2. TICE BCG [Suspect]
     Active Substance: BACILLUS CALMETTE-GUERIN SUBSTRAIN TICE LIVE ANTIGEN
     Indication: Bladder cancer
     Dosage: TWO ROUNDS, 12 WEEKS TOTAL
     Dates: start: 2021
  3. ATORVASTATIN [Concomitant]
     Active Substance: ATORVASTATIN
     Dosage: UNK
  4. VITAMINS NOS [Concomitant]
     Active Substance: VITAMINS
     Dosage: UNK
  5. ENALAPRIL [Concomitant]
     Active Substance: ENALAPRIL
     Dosage: UNK
  6. VITAMIN D NOS [Concomitant]
     Active Substance: VITAMIN D NOS
     Dosage: UNK

REACTIONS (6)
  - Autoimmune pancreatitis [Recovering/Resolving]
  - Feeding disorder [Recovering/Resolving]
  - Abdominal pain upper [Recovering/Resolving]
  - Fatigue [Recovering/Resolving]
  - Decreased appetite [Recovering/Resolving]
  - Vomiting [Recovering/Resolving]

NARRATIVE: CASE EVENT DATE: 20230124
